FAERS Safety Report 6970172-3 (Version None)
Quarter: 2010Q3

REPORT INFORMATION
  Report Type: 
  Country: None (occurrence: None)
  Receive Date: 20100908
  Receipt Date: 20100830
  Transmission Date: 20110219
  Serious: Yes (Hospitalization, Other)
  Sender: FDA-Public Use
  Company Number: EE-MPIJNJ-2010-04609

PATIENT

DRUGS (9)
  1. VELCADE [Suspect]
     Indication: MULTIPLE MYELOMA
     Dosage: 2.65 MG, UNK
     Dates: start: 20100617, end: 20100814
  2. DOXORUBICIN HCL [Concomitant]
     Indication: MULTIPLE MYELOMA
     Dosage: 18.3 MG, UNK
     Route: 042
     Dates: start: 20100617, end: 20100814
  3. DEXAMETHASONE [Concomitant]
     Indication: MULTIPLE MYELOMA
     Dosage: 40 MG, UNK
     Route: 042
     Dates: start: 20100617, end: 20100814
  4. METOPROLOL TARTRATE [Concomitant]
     Indication: HYPERTENSION
     Dosage: 25 MG, UNK
     Route: 048
  5. MORPHINE [Concomitant]
     Indication: PAIN
     Dosage: 90 MG, UNK
     Route: 048
     Dates: start: 20100422
  6. FUROSEMIDE [Concomitant]
     Indication: DIURETIC THERAPY
     Dosage: 60 MG, UNK
     Route: 048
     Dates: start: 20100422
  7. ACYCLOVIR [Concomitant]
     Indication: PROPHYLAXIS
     Dosage: 400 MG, BID
     Dates: start: 20100728, end: 20100817
  8. CLEXANE [Concomitant]
     Indication: PROPHYLAXIS
     Dosage: 0.4 ML, UNK
     Dates: start: 20100728
  9. OMEPRAZOLE [Concomitant]
     Indication: PROPHYLAXIS
     Dosage: 20 MG, BID
     Dates: start: 20100422

REACTIONS (2)
  - CONVULSION [None]
  - HOSPITALISATION [None]
